FAERS Safety Report 15390011 (Version 1)
Quarter: 2018Q3

REPORT INFORMATION
  Report Type: Report from Study
  Country: IT (occurrence: IT)
  Receive Date: 20180917
  Receipt Date: 20180917
  Transmission Date: 20181010
  Serious: Yes (Other)
  Sender: FDA-Public Use
  Company Number: IT-TEVA-2018-IT-954914

PATIENT
  Age: 67 Year
  Sex: Male

DRUGS (1)
  1. CLARITHROMYCIN. [Suspect]
     Active Substance: CLARITHROMYCIN
     Route: 065

REACTIONS (4)
  - Pyrexia [Unknown]
  - Cough [Unknown]
  - Urticaria [Unknown]
  - Generalised erythema [Unknown]

NARRATIVE: CASE EVENT DATE: 20180802
